FAERS Safety Report 4516216-X (Version None)
Quarter: 2004Q4

REPORT INFORMATION
  Report Type: 
  Country: None (occurrence: None)
  Receive Date: 20041130
  Receipt Date: 20041130
  Transmission Date: 20050328
  Serious: Yes (Life-Threatening, Hospitalization)
  Sender: FDA-Public Use
  Company Number: None

PATIENT
  Age: 85 Year
  Sex: Male
  Weight: 59.8 kg

DRUGS (1)
  1. AMIODARONE 200MG [Suspect]
     Indication: ATRIAL FIBRILLATION
     Dosage: 200MG DAILY  ORAL
     Route: 048
     Dates: start: 20030101, end: 20040807

REACTIONS (4)
  - DRUG TOXICITY [None]
  - FIBROSIS [None]
  - PNEUMONIA [None]
  - RESPIRATORY FAILURE [None]
